FAERS Safety Report 12141961 (Version 3)
Quarter: 2016Q3

REPORT INFORMATION
  Report Type: Spontaneous
  Country: US (occurrence: US)
  Receive Date: 20160303
  Receipt Date: 20160707
  Transmission Date: 20161109
  Serious: No
  Sender: FDA-Public Use
  Company Number: US-009507513-1602USA013014

PATIENT
  Age: 22 Year
  Sex: Female
  Weight: 88.89 kg

DRUGS (1)
  1. NEXPLANON [Suspect]
     Active Substance: ETONOGESTREL
     Indication: CONTRACEPTION
     Dosage: UNK
     Route: 059
     Dates: start: 20160217, end: 20160302

REACTIONS (6)
  - Implant site erythema [Unknown]
  - Device deployment issue [Recovered/Resolved]
  - Implant site irritation [Unknown]
  - Device expulsion [Recovered/Resolved]
  - Complication of device insertion [Recovered/Resolved]
  - Product quality issue [Unknown]

NARRATIVE: CASE EVENT DATE: 201602
